FAERS Safety Report 13257173 (Version 1)
Quarter: 2017Q1

REPORT INFORMATION
  Report Type: Spontaneous
  Country: JP (occurrence: JP)
  Receive Date: 20170221
  Receipt Date: 20170221
  Transmission Date: 20170428
  Serious: Yes (Death, Hospitalization, Other)
  Sender: FDA-Public Use
  Company Number: JP-ASTRAZENECA-2017SE17633

PATIENT
  Age: 30636 Day
  Sex: Female
  Weight: 24 kg

DRUGS (11)
  1. MEVALOTIN [Concomitant]
     Active Substance: PRAVASTATIN SODIUM
     Route: 065
     Dates: end: 20160701
  2. PREDNISOLONE. [Concomitant]
     Active Substance: PREDNISOLONE
     Route: 065
     Dates: end: 20160701
  3. REBAMIPIDE [Concomitant]
     Active Substance: REBAMIPIDE
     Route: 065
     Dates: end: 20160701
  4. AMLODIPINE [Concomitant]
     Active Substance: AMLODIPINE BESYLATE
     Route: 065
     Dates: end: 20160701
  5. NEXIUM [Suspect]
     Active Substance: ESOMEPRAZOLE MAGNESIUM
     Route: 048
     Dates: end: 20160701
  6. RHEUMATREX [Suspect]
     Active Substance: METHOTREXATE SODIUM
     Indication: RHEUMATOID ARTHRITIS
     Route: 048
     Dates: end: 20160701
  7. BAYASPIRIN [Concomitant]
     Active Substance: ASPIRIN
  8. MAGMITT [Concomitant]
     Active Substance: MAGNESIUM OXIDE
     Route: 065
     Dates: end: 20160701
  9. BIOFERMIN R [Concomitant]
     Active Substance: BACILLUS SUBTILIS\LACTOBACILLUS ACIDOPHILUS\STREPTOCOCCUS FAECAIS
     Route: 065
     Dates: end: 20160701
  10. CILOSTAZOL. [Suspect]
     Active Substance: CILOSTAZOL
     Route: 048
     Dates: end: 20160701
  11. CELECOX [Concomitant]
     Active Substance: CELECOXIB
     Route: 065
     Dates: end: 20160701

REACTIONS (7)
  - Pancytopenia [Fatal]
  - Underweight [Unknown]
  - Febrile neutropenia [Fatal]
  - Hypophagia [Fatal]
  - Nausea [Fatal]
  - Pyrexia [Fatal]
  - Mouth haemorrhage [Fatal]

NARRATIVE: CASE EVENT DATE: 20160528
